FAERS Safety Report 14599041 (Version 1)
Quarter: 2018Q1

REPORT INFORMATION
  Report Type: Spontaneous
  Country: ES (occurrence: ES)
  Receive Date: 20180305
  Receipt Date: 20180305
  Transmission Date: 20180509
  Serious: Yes (Other)
  Sender: FDA-Public Use
  Company Number: ES-AUROBINDO-AUR-APL-2018-011457

PATIENT
  Age: 86 Year
  Sex: Female

DRUGS (9)
  1. ACENOCUMAROL [Interacting]
     Active Substance: ACENOCOUMAROL
     Dosage: 2 MG CADA 24 HORAS
     Route: 048
     Dates: start: 201702, end: 20170324
  2. ONDANSETRON [Concomitant]
     Active Substance: ONDANSETRON
     Indication: PRODUCT USED FOR UNKNOWN INDICATION
     Dosage: 4 MG CADA 8 HORAS ()
     Route: 065
     Dates: start: 20170323
  3. ALOPURINOL [Concomitant]
     Active Substance: ALLOPURINOL
     Indication: PRODUCT USED FOR UNKNOWN INDICATION
     Dosage: 100 MG CAD 24 HORAS
     Route: 065
  4. PARACETAMOL [Concomitant]
     Active Substance: ACETAMINOPHEN
     Indication: PRODUCT USED FOR UNKNOWN INDICATION
     Dosage: 1 GR CADA 8 HORAS ()
     Route: 065
  5. DIGOXINA [Concomitant]
     Active Substance: DIGOXIN
     Indication: PRODUCT USED FOR UNKNOWN INDICATION
     Dosage: 0,25 CADA 24 HORAS ()
     Route: 065
     Dates: start: 20170320
  6. PIPERACILLIN AND TAZOBACTAM [Suspect]
     Active Substance: PIPERACILLIN SODIUM\TAZOBACTAM SODIUM
     Indication: PRODUCT USED FOR UNKNOWN INDICATION
     Dosage: 4 GR CADA 8 HORAS ()
     Route: 042
     Dates: start: 20170321
  7. FUROSEMIDE. [Concomitant]
     Active Substance: FUROSEMIDE
     Indication: PRODUCT USED FOR UNKNOWN INDICATION
     Dosage: 20 MG CADA 8 HORAS ()
     Route: 065
  8. FENTANILO                          /00174601/ [Concomitant]
     Active Substance: FENTANYL
     Dosage: 100 MCG SI PRECISA ()
     Route: 065
  9. OMEPRAZOLE. [Concomitant]
     Active Substance: OMEPRAZOLE
     Indication: PRODUCT USED FOR UNKNOWN INDICATION
     Dosage: 20 MG CADA 24 HORAS ()
     Route: 065

REACTIONS (1)
  - Hypocoagulable state [Recovered/Resolved]

NARRATIVE: CASE EVENT DATE: 20170324
